FAERS Safety Report 5484914-X (Version None)
Quarter: 2007Q4

REPORT INFORMATION
  Report Type: 
  Country: None (occurrence: None)
  Receive Date: 20071011
  Receipt Date: 20070713
  Transmission Date: 20080405
  Serious: Yes (Hospitalization)
  Sender: FDA-Public Use
  Company Number: COM # 07-170

PATIENT
  Age: 75 Year
  Sex: Female
  Weight: 68.0396 kg

DRUGS (3)
  1. ZOLPIDEM [Suspect]
     Indication: INSOMNIA
  2. BLOOD PRESSURE MEDICINE [Concomitant]
  3. REFLEX MEDICATION [Concomitant]

REACTIONS (4)
  - DIARRHOEA [None]
  - FOOD POISONING [None]
  - HEART RATE DECREASED [None]
  - HYPERHIDROSIS [None]
